FAERS Safety Report 8881529 (Version 1)
Quarter: 2012Q4

REPORT INFORMATION
  Report Type: 
  Country: GB (occurrence: GB)
  Receive Date: 20121101
  Receipt Date: 20121101
  Transmission Date: 20130627
  Serious: Yes (Other)
  Sender: FDA-Public Use
  Company Number: GB-B.I. PHARMACEUTICALS,INC./RIDGEFIELD-2012-UK-01666UK

PATIENT
  Age: 8 Year
  Sex: Female

DRUGS (2)
  1. ATROVENT [Suspect]
     Route: 055
  2. ATROVENT [Suspect]
     Route: 055

REACTIONS (3)
  - Dyspnoea [Unknown]
  - Wheezing [Unknown]
  - Pharyngeal oedema [Unknown]
